FAERS Safety Report 23976966 (Version 2)
Quarter: 2024Q3

REPORT INFORMATION
  Report Type: Spontaneous
  Country: US (occurrence: US)
  Receive Date: 20240614
  Receipt Date: 20240702
  Transmission Date: 20241017
  Serious: No
  Sender: PFIZER
  Company Number: US-PFIZER INC-202400191909

PATIENT
  Age: 74 Year
  Sex: Female
  Weight: 49.9 kg

DRUGS (3)
  1. IBRANCE [Suspect]
     Active Substance: PALBOCICLIB
     Indication: Breast cancer
     Dosage: 1 TABLET IN MORNING AROUND 9:30 ONCE A DAY, ^20 LIKE 21^ PILLS, THEN A BREAK SEVEN DAYS
     Route: 048
     Dates: start: 20240523
  2. IBRANCE [Suspect]
     Active Substance: PALBOCICLIB
     Dosage: 75 MG, CYCLIC (1 TABLET DAILY 7 DAYS ON, 7 DAYS OFF)
  3. ANASTROZOLE [Suspect]
     Active Substance: ANASTROZOLE
     Indication: Breast cancer
     Dosage: UNK

REACTIONS (5)
  - Dizziness [Unknown]
  - Pruritus [Unknown]
  - Dry skin [Unknown]
  - Vomiting [Unknown]
  - Off label use [Unknown]

NARRATIVE: CASE EVENT DATE: 20240523
